FAERS Safety Report 9454237 (Version 2)
Quarter: 2013Q4

REPORT INFORMATION
  Report Type: Spontaneous
  Country: US (occurrence: None)
  Receive Date: 20130807
  Receipt Date: 20131015
  Transmission Date: 20140711
  Serious: Yes (Disabling, Other)
  Sender: FDA-Public Use
  Company Number: ACO_37692_2013

PATIENT
  Age: 77 Year
  Sex: Female
  Weight: 81.6 kg

DRUGS (11)
  1. AMPYRA (DALFAMPRIDINE) TABLET, 10 MG [Suspect]
     Indication: PRODUCT USED FOR UNKNOWN INDICATION
     Route: 048
     Dates: start: 20130723, end: 20130729
  2. VESICARE [Concomitant]
  3. CRESTOR [Concomitant]
  4. HYDROCHLOROTHIAZIDE [Concomitant]
  5. ECOTRIN [Concomitant]
  6. OMEPRAZOLE [Concomitant]
  7. PRESERVISION [Concomitant]
  8. LEVOTHYROXINE [Concomitant]
  9. VITAMIN D3 [Concomitant]
  10. CALCIUM [Concomitant]
  11. AVONEX [Concomitant]

REACTIONS (7)
  - Abasia [None]
  - Aphasia [None]
  - Movement disorder [None]
  - Activities of daily living impaired [None]
  - Swelling face [None]
  - Rash generalised [None]
  - Hypoaesthesia [None]
